FAERS Safety Report 8993461 (Version 2)
Quarter: 2013Q1

REPORT INFORMATION
  Report Type: Spontaneous
  Country: US (occurrence: US)
  Receive Date: 20130102
  Receipt Date: 20130204
  Transmission Date: 20140127
  Serious: Yes (Other)
  Sender: FDA-Public Use
  Company Number: US-FRI-1000041309

PATIENT
  Age: 43 Year
  Sex: Male

DRUGS (10)
  1. VIIBRYD [Suspect]
     Indication: DEPRESSION
     Dosage: 10 MG
     Route: 048
     Dates: start: 20121227
  2. VIIBRYD [Suspect]
     Indication: DEPRESSION
     Dates: end: 201301
  3. TRILIPIX [Concomitant]
     Indication: BLOOD CHOLESTEROL INCREASED
  4. KLONOPIN [Concomitant]
     Indication: ANXIETY
  5. LORTAB [Concomitant]
     Indication: BACK PAIN
     Dosage: 10 MG
  6. LORTAB [Concomitant]
     Indication: ARTHRALGIA
  7. NEXIUM [Concomitant]
     Indication: GASTROOESOPHAGEAL REFLUX DISEASE
  8. LISINOPRIL [Concomitant]
     Indication: HYPERTENSION
     Dosage: 40 MG
  9. VITAMIN D [Concomitant]
     Indication: VITAMIN D DEFICIENCY
  10. LEVEMIR [Concomitant]
     Indication: DIABETES MELLITUS
     Dosage: 40 UNITS QPM
     Dates: start: 2009

REACTIONS (5)
  - Blood glucose increased [Recovered/Resolved]
  - Vomiting [Recovered/Resolved]
  - Feeling abnormal [Recovered/Resolved]
  - Nausea [Recovered/Resolved]
  - Fatigue [Recovered/Resolved]
